FAERS Safety Report 6104990-0 (Version None)
Quarter: 2009Q1

REPORT INFORMATION
  Report Type: 
  Country: None (occurrence: None)
  Receive Date: 20090306
  Receipt Date: 20090227
  Transmission Date: 20090719
  Serious: Yes (Other)
  Sender: FDA-Public Use
  Company Number: GE-ABBOTT-08P-225-0479534-00

PATIENT
  Sex: Female

DRUGS (1)
  1. MERIDIA [Suspect]
     Indication: OBESITY
     Dosage: NOT REPORTED

REACTIONS (2)
  - PYELONEPHRITIS [None]
  - RENAL FAILURE [None]
